FAERS Safety Report 8888441 (Version 2)
Quarter: 2013Q4

REPORT INFORMATION
  Report Type: Spontaneous
  Country: DK (occurrence: FR)
  Receive Date: 20121106
  Receipt Date: 20131003
  Transmission Date: 20140711
  Serious: Yes (Other)
  Sender: FDA-Public Use
  Company Number: FR-FRI-1000040117

PATIENT
  Age: 84 Year
  Sex: Female

DRUGS (8)
  1. CITALOPRAM [Suspect]
     Dosage: 20 MG
     Route: 048
     Dates: end: 201202
  2. ZYPREXA [Suspect]
     Dosage: 5 MG
     Route: 048
     Dates: end: 201202
  3. EXELON [Suspect]
     Dosage: 9000 MCG
     Route: 048
     Dates: end: 201202
  4. KARDEGIC [Concomitant]
     Route: 048
  5. COAPROVEL [Concomitant]
  6. LOVENOX [Concomitant]
     Dosage: 4000 IU ANTI-XA/0.4 ML
     Route: 058
  7. IMOVANE [Concomitant]
     Route: 048
  8. PROTELOS [Concomitant]
     Route: 048

REACTIONS (4)
  - Extrapyramidal disorder [Recovered/Resolved]
  - Muscle rigidity [Recovered/Resolved]
  - Resting tremor [Recovered/Resolved]
  - Dysarthria [Recovered/Resolved]
